FAERS Safety Report 10200765 (Version 2)
Quarter: 2014Q3

REPORT INFORMATION
  Report Type: Spontaneous
  Country: US (occurrence: US)
  Receive Date: 20140528
  Receipt Date: 20140701
  Transmission Date: 20150326
  Serious: Yes (Life-Threatening, Other)
  Sender: FDA-Public Use
  Company Number: US-009507513-1405USA012900

PATIENT
  Age: 38 Year
  Sex: Female
  Weight: 56.69 kg

DRUGS (1)
  1. RAGWITEK [Suspect]
     Active Substance: AMBROSIA ARTEMISIIFOLIA POLLEN
     Indication: SEASONAL ALLERGY
     Dosage: 1 DOSE, ONCE
     Route: 048
     Dates: start: 20140426, end: 20140426

REACTIONS (8)
  - Swollen tongue [Recovered/Resolved]
  - Eye swelling [Recovered/Resolved]
  - Dysphagia [Recovered/Resolved]
  - Laryngeal oedema [Recovered/Resolved]
  - Tongue pruritus [Recovered/Resolved]
  - Paraesthesia oral [Recovered/Resolved]
  - Angioedema [Recovered/Resolved]
  - Cough [Recovered/Resolved]

NARRATIVE: CASE EVENT DATE: 20140426
